FAERS Safety Report 20052533 (Version 6)
Quarter: 2024Q4

REPORT INFORMATION
  Report Type: Report from Study
  Country: CO (occurrence: CO)
  Receive Date: 20211110
  Receipt Date: 20241001
  Transmission Date: 20250115
  Serious: Yes (Hospitalization, Other)
  Sender: ROCHE
  Company Number: CO-002147023-NVSC2021CO202875

PATIENT
  Sex: Female
  Weight: 65 kg

DRUGS (13)
  1. XOLAIR [Suspect]
     Active Substance: OMALIZUMAB
     Indication: Asthma
     Dosage: 150 MG, QMO (STOPPED 2 YEARS AGO)
     Route: 058
     Dates: start: 2010
  2. XOLAIR [Suspect]
     Active Substance: OMALIZUMAB
     Dosage: 300 MG, QMO (STARTED 2 YEARS AGO)
     Route: 058
  3. XOLAIR [Suspect]
     Active Substance: OMALIZUMAB
     Route: 058
     Dates: start: 20160721
  4. XOLAIR [Suspect]
     Active Substance: OMALIZUMAB
     Route: 058
     Dates: end: 202407
  5. XOLAIR [Suspect]
     Active Substance: OMALIZUMAB
     Dosage: 300 MG, EVERY 40 DAYS
     Route: 058
     Dates: end: 202407
  6. XOLAIR [Suspect]
     Active Substance: OMALIZUMAB
     Dosage: UNK
     Route: 058
     Dates: start: 20240912
  7. ALBUTEROL [Concomitant]
     Active Substance: ALBUTEROL
     Indication: Asthma
     Dosage: UNK, PRN (STARTED 24 YEARS AGO)
     Route: 050
  8. ALBUTEROL [Concomitant]
     Active Substance: ALBUTEROL
     Dosage: UNK, PRN (STARTED 24 YEARS AGO)
     Route: 048
  9. TIOTROPIUM BROMIDE [Concomitant]
     Active Substance: TIOTROPIUM BROMIDE
     Indication: Asthma
     Dosage: UNK, Q24H (STARTED 8 YEARS AGO)
     Route: 050
  10. TIOTROPIUM BROMIDE [Concomitant]
     Active Substance: TIOTROPIUM BROMIDE
     Dosage: UNK, Q24H (STARTED 8 YEARS AGO)
     Route: 048
  11. MONTELUKAST [Concomitant]
     Active Substance: MONTELUKAST
     Indication: Asthma
     Dosage: 10 MG, Q24H (STARTED 12 YEARS AGO)
     Route: 050
  12. MONTELUKAST [Concomitant]
     Active Substance: MONTELUKAST
     Dosage: 10 MG, Q24H (STARTED 12 YEARS AGO)
     Route: 048
  13. AEROVIAL (COLOMBIA) [Concomitant]
     Indication: Asthma
     Dosage: UNK, Q8H (STARTED 7 YEARS AGO)
     Route: 048

REACTIONS (20)
  - Asthmatic crisis [Recovered/Resolved]
  - Asphyxia [Unknown]
  - Diabetes mellitus [Unknown]
  - Abdominal pain upper [Unknown]
  - Hypertension [Unknown]
  - Pain [Unknown]
  - Depression [Unknown]
  - Crying [Unknown]
  - Chills [Unknown]
  - Choking [Not Recovered/Not Resolved]
  - Insomnia [Unknown]
  - General physical health deterioration [Unknown]
  - Mood altered [Unknown]
  - Body height decreased [Unknown]
  - Weight increased [Unknown]
  - Product administration interrupted [Unknown]
  - Back pain [Unknown]
  - Inappropriate schedule of product administration [Unknown]
  - Chest discomfort [Not Recovered/Not Resolved]
  - Asthmatic crisis [Not Recovered/Not Resolved]

NARRATIVE: CASE EVENT DATE: 20140101
